FAERS Safety Report 14412706 (Version 2)
Quarter: 2018Q2

REPORT INFORMATION
  Report Type: Report from Study
  Country: CO (occurrence: CO)
  Receive Date: 20180119
  Receipt Date: 20180530
  Transmission Date: 20180711
  Serious: Yes (Hospitalization, Other)
  Sender: FDA-Public Use
  Company Number: CO-ASTELLAS-2018US002687

PATIENT
  Age: 70 Year
  Sex: Female
  Weight: 55 kg

DRUGS (1)
  1. TACROLIMUS. [Suspect]
     Active Substance: TACROLIMUS
     Indication: RENAL TRANSPLANT
     Route: 048
     Dates: start: 20120510

REACTIONS (4)
  - Cataract [Not Recovered/Not Resolved]
  - Pain in extremity [Not Recovered/Not Resolved]
  - Road traffic accident [Not Recovered/Not Resolved]
  - Gait disturbance [Not Recovered/Not Resolved]

NARRATIVE: CASE EVENT DATE: 2017
